FAERS Safety Report 23395506 (Version 1)
Quarter: 2024Q1

REPORT INFORMATION
  Report Type: Spontaneous
  Country: FR (occurrence: None)
  Receive Date: 20240112
  Receipt Date: 20240112
  Transmission Date: 20240409
  Serious: Yes (Life-Threatening, Hospitalization)
  Sender: FDA-Public Use
  Company Number: None

PATIENT
  Age: 71 Year
  Sex: Male
  Weight: 80.3 kg

DRUGS (16)
  1. CELLCEPT [Suspect]
     Active Substance: MYCOPHENOLATE MOFETIL
     Indication: Renal transplant
     Route: 065
     Dates: start: 20210409, end: 20210519
  2. PAROXETINE [Suspect]
     Active Substance: PAROXETINE
     Indication: Adult failure to thrive
     Route: 065
     Dates: start: 20210427, end: 20210517
  3. CALCIPARINE [Suspect]
     Active Substance: HEPARIN CALCIUM
     Indication: Atrial fibrillation
     Route: 065
     Dates: start: 20210428, end: 20210517
  4. TACROLIMUS [Suspect]
     Active Substance: TACROLIMUS
     Indication: Renal transplant
     Route: 065
     Dates: start: 20210409, end: 20210519
  5. FLUINDIONE [Suspect]
     Active Substance: FLUINDIONE
     Indication: Atrial fibrillation
     Route: 065
     Dates: start: 20140615, end: 20210517
  6. PREDNISONE [Suspect]
     Active Substance: PREDNISONE
     Indication: Renal transplant
     Route: 065
     Dates: start: 20210409, end: 20210519
  7. TAMSULOSIN HYDROCHLORIDE [Concomitant]
     Active Substance: TAMSULOSIN HYDROCHLORIDE
  8. SODIUM BICARBONATE [Concomitant]
     Active Substance: SODIUM BICARBONATE
  9. ARANESP [Concomitant]
     Active Substance: DARBEPOETIN ALFA
  10. OFLOXACIN [Concomitant]
     Active Substance: OFLOXACIN
  11. POTASSIUM CHLORIDE [Concomitant]
     Active Substance: POTASSIUM CHLORIDE
  12. PENTACARINAT [Concomitant]
     Active Substance: PENTAMIDINE ISETHIONATE
  13. LEVOTHYROXINE [Concomitant]
     Active Substance: LEVOTHYROXINE
  14. ESOMEPRAZOLE [Concomitant]
     Active Substance: ESOMEPRAZOLE
  15. JANUVIA [Concomitant]
     Active Substance: SITAGLIPTIN PHOSPHATE
  16. AMIODARONE [Concomitant]
     Active Substance: AMIODARONE

REACTIONS (3)
  - Escherichia pyelonephritis [Recovered/Resolved with Sequelae]
  - Subcapsular renal haematoma [Recovered/Resolved with Sequelae]
  - Meningoencephalitis herpetic [Recovered/Resolved]

NARRATIVE: CASE EVENT DATE: 20210517
